FAERS Safety Report 9399349 (Version 1)
Quarter: 2013Q3

REPORT INFORMATION
  Report Type: Spontaneous
  Country: US (occurrence: US)
  Receive Date: 20130715
  Receipt Date: 20130715
  Transmission Date: 20140515
  Serious: No
  Sender: FDA-Public Use
  Company Number: US-PFIZER INC-2013204981

PATIENT
  Age: 72 Year
  Sex: Female
  Weight: 74.83 kg

DRUGS (3)
  1. NORVASC [Suspect]
     Indication: HYPERTENSION
     Dosage: 5 MG, 2X/DAY
  2. EFFEXOR XR [Suspect]
     Dosage: 75 MG, 2X/DAY
     Dates: start: 200006
  3. COREG [Concomitant]
     Indication: HYPERTENSION
     Dosage: 6.25 MG, 2X/DAY

REACTIONS (7)
  - Thinking abnormal [Unknown]
  - Anxiety [Unknown]
  - Hot flush [Unknown]
  - Hunger [Unknown]
  - Hypersomnia [Unknown]
  - Irritability [Unknown]
  - Malaise [Unknown]
